FAERS Safety Report 18439352 (Version 5)
Quarter: 2025Q3

REPORT INFORMATION
  Report Type: Spontaneous
  Country: EU (occurrence: EU)
  Receive Date: 20201028
  Receipt Date: 20250808
  Transmission Date: 20251020
  Serious: Yes (Death, Other)
  Sender: BOEHRINGER INGELHEIM
  Company Number: EU-AFSSAPS-TS20200896

PATIENT
  Age: 72 Year
  Sex: Male

DRUGS (2)
  1. OFEV [Suspect]
     Active Substance: NINTEDANIB
     Indication: Idiopathic pulmonary fibrosis
     Route: 048
     Dates: start: 201909, end: 20201010
  2. OFEV [Suspect]
     Active Substance: NINTEDANIB

REACTIONS (6)
  - Clostridial sepsis [Fatal]
  - Klebsiella sepsis [Fatal]
  - Respiratory failure [Unknown]
  - Clostridium bacteraemia [Unknown]
  - Klebsiella bacteraemia [Unknown]
  - Cholecystitis [Unknown]

NARRATIVE: CASE EVENT DATE: 20201010
